FAERS Safety Report 10696442 (Version 3)
Quarter: 2015Q1

REPORT INFORMATION
  Report Type: Spontaneous
  Country: FR (occurrence: FR)
  Receive Date: 20150107
  Receipt Date: 20150226
  Transmission Date: 20150721
  Serious: Yes (Death, Life-Threatening, Hospitalization)
  Sender: FDA-Public Use
  Company Number: FR-B.I. PHARMACEUTICALS,INC./RIDGEFIELD-2015-BI-00618FF

PATIENT
  Age: 84 Year
  Sex: Male

DRUGS (10)
  1. ENALAPRIL (MALEATE OF) [Concomitant]
     Indication: HYPERTENSION
     Dosage: 20 MG
     Route: 048
  2. PRAVASTATINE SODIUM [Concomitant]
     Indication: HYPERCHOLESTEROLAEMIA
     Dosage: 20 MG
     Route: 048
  3. SERESTA [Concomitant]
     Active Substance: OXAZEPAM
     Indication: ANXIETY
  4. LERCANIDIPINE (HYDROCHLORIDE) [Concomitant]
     Indication: HYPERTENSION
     Dosage: 10 MG
     Route: 048
  5. MODOPAR [Concomitant]
     Active Substance: BENSERAZIDE HYDROCHLORIDE\LEVODOPA
     Indication: PARKINSONISM
     Dosage: DOSE PER APPLICATION: 100MG/25MG; DAILY DOSE: 300MG/75MG
     Route: 048
  6. TEMERIT [Concomitant]
     Active Substance: NEBIVOLOL
     Indication: PRODUCT USED FOR UNKNOWN INDICATION
     Dosage: 1.25 MG
     Route: 048
  7. CORDARONE [Concomitant]
     Active Substance: AMIODARONE HYDROCHLORIDE
     Indication: ATRIAL FIBRILLATION
  8. CORDARONE [Concomitant]
     Active Substance: AMIODARONE HYDROCHLORIDE
     Indication: ARRHYTHMIA
     Dosage: 100 MG
     Route: 048
  9. PRADAXA [Suspect]
     Active Substance: DABIGATRAN ETEXILATE MESYLATE
     Indication: PRODUCT USED FOR UNKNOWN INDICATION
     Dosage: 220 MG
     Route: 048
     Dates: end: 20141121
  10. SERESTA [Concomitant]
     Active Substance: OXAZEPAM
     Indication: COGNITIVE DISORDER
     Dosage: 10 MG
     Route: 048

REACTIONS (3)
  - Haematoma [Fatal]
  - Haemothorax [Fatal]
  - Traumatic haemothorax [Fatal]

NARRATIVE: CASE EVENT DATE: 20141120
